FAERS Safety Report 4714847-5 (Version None)
Quarter: 2005Q3

REPORT INFORMATION
  Report Type: 
  Country: None (occurrence: None)
  Receive Date: 20050714
  Receipt Date: 20050714
  Transmission Date: 20060218
  Serious: Yes (Disabling)
  Sender: FDA-Public Use
  Company Number: None

PATIENT
  Age: 47 Year
  Sex: Female
  Weight: 90.7194 kg

DRUGS (2)
  1. KETEK [Suspect]
     Indication: INFLUENZA
     Dosage: 2 PILLS TWICE DAY
     Dates: start: 20050528, end: 20050602
  2. KETEK [Suspect]
     Indication: NASOPHARYNGITIS
     Dosage: 2 PILLS TWICE DAY
     Dates: start: 20050528, end: 20050602

REACTIONS (4)
  - ANXIETY [None]
  - IMPAIRED DRIVING ABILITY [None]
  - PARAESTHESIA [None]
  - VISION BLURRED [None]
